FAERS Safety Report 7221079-8 (Version None)
Quarter: 2011Q1

REPORT INFORMATION
  Report Type: 
  Country: None (occurrence: None)
  Receive Date: 20110112
  Receipt Date: 20110105
  Transmission Date: 20110831
  Serious: Yes (Life-Threatening, Other)
  Sender: FDA-Public Use
  Company Number: US-PFIZER INC-2011003351

PATIENT
  Sex: Male
  Weight: 100.68 kg

DRUGS (9)
  1. GABAPENTIN [Suspect]
     Indication: NEUROSIS
  2. METOPROLOL [Concomitant]
     Dosage: 25 MG, UNK
     Route: 048
  3. GABAPENTIN [Suspect]
     Indication: CONVULSION
     Dosage: UNK
  4. GABAPENTIN [Suspect]
     Indication: PAIN
  5. KEPPRA [Suspect]
     Dosage: 750 MG, UNK
  6. PHENOBARBITONE [Suspect]
     Dosage: UNK
  7. SIMVASTATIN [Concomitant]
     Dosage: 80 MG, UNK
     Route: 048
  8. TRAZODONE [Suspect]
     Indication: ANTIDEPRESSANT THERAPY
     Dosage: 50 MG, AS NEEDED
     Route: 048
  9. CLOPIDOGREL [Concomitant]
     Dosage: 75 MG, UNK
     Route: 048

REACTIONS (13)
  - IRRITABILITY [None]
  - HYPERPHAGIA [None]
  - NECK PAIN [None]
  - DECREASED APPETITE [None]
  - BACK PAIN [None]
  - DRUG DOSE OMISSION [None]
  - HUNGER [None]
  - DRUG INEFFECTIVE [None]
  - SUICIDAL IDEATION [None]
  - MYOCARDIAL INFARCTION [None]
  - ANGER [None]
  - SLEEP DISORDER [None]
  - CHEST PAIN [None]
